FAERS Safety Report 15849503 (Version 1)
Quarter: 2019Q1

REPORT INFORMATION
  Report Type: Spontaneous
  Country: GB (occurrence: GB)
  Receive Date: 20190121
  Receipt Date: 20190121
  Transmission Date: 20190417
  Serious: Yes (Other)
  Sender: FDA-Public Use
  Company Number: GB-TEVA-2019-GB-100021

PATIENT
  Sex: Female

DRUGS (1)
  1. BUMETANIDE. [Suspect]
     Active Substance: BUMETANIDE
     Indication: HYPERTENSION
     Dosage: 4 MILLIGRAM DAILY;
     Route: 048
     Dates: start: 20181202, end: 20181228

REACTIONS (1)
  - Acute kidney injury [Recovered/Resolved with Sequelae]

NARRATIVE: CASE EVENT DATE: 20181227
